FAERS Safety Report 5061311-2 (Version None)
Quarter: 2006Q3

REPORT INFORMATION
  Report Type: 
  Country: None (occurrence: None)
  Receive Date: 20060719
  Receipt Date: 20060719
  Transmission Date: 20061208
  Serious: Yes (Hospitalization)
  Sender: FDA-Public Use
  Company Number: None

PATIENT
  Age: 75 Year
  Sex: Male

DRUGS (9)
  1. METOPROLOL TARTRATE [Suspect]
     Indication: HYPERTENSION
     Dosage: 6.25MG QD
     Dates: start: 20060413
  2. LISINOPRIL [Suspect]
     Indication: HYPERTENSION
     Dosage: 40MG QD
     Dates: start: 20011101
  3. FELODIPINE [Suspect]
     Indication: HYPERTENSION
     Dosage: 10MG QD
     Dates: start: 20030901
  4. GLYBURIDE [Concomitant]
  5. OXYBUTYNIN [Concomitant]
  6. ZOLOFT [Concomitant]
  7. ZOCOR [Concomitant]
  8. NITROGLYCERIN [Concomitant]
  9. B12 [Concomitant]

REACTIONS (1)
  - DIZZINESS [None]
